FAERS Safety Report 19311863 (Version 3)
Quarter: 2021Q3

REPORT INFORMATION
  Report Type: Report from Study
  Country: US (occurrence: US)
  Receive Date: 20210527
  Receipt Date: 20210709
  Transmission Date: 20211014
  Serious: No
  Sender: FDA-Public Use
  Company Number: NVSC2021US118882

PATIENT
  Sex: Female

DRUGS (4)
  1. MEKINIST [Suspect]
     Active Substance: TRAMETINIB DIMETHYL SULFOXIDE
     Indication: LUNG NEOPLASM MALIGNANT
     Dosage: 2 UG, QD
     Route: 048
     Dates: start: 20210521, end: 20210628
  2. MEKINIST [Suspect]
     Active Substance: TRAMETINIB DIMETHYL SULFOXIDE
     Indication: LUNG NEOPLASM MALIGNANT
  3. TAFINLAR [Suspect]
     Active Substance: DABRAFENIB MESYLATE
     Indication: LUNG NEOPLASM MALIGNANT
     Dosage: 75 MG, BID
     Route: 048
     Dates: start: 20210521, end: 20210628
  4. TAFINLAR [Suspect]
     Active Substance: DABRAFENIB MESYLATE
     Indication: LUNG NEOPLASM MALIGNANT

REACTIONS (5)
  - Frequent bowel movements [Unknown]
  - Abdominal discomfort [Unknown]
  - Vomiting [Unknown]
  - Nausea [Unknown]
  - Fatigue [Unknown]
